FAERS Safety Report 16655862 (Version 1)
Quarter: 2019Q3

REPORT INFORMATION
  Report Type: Spontaneous
  Country: US (occurrence: US)
  Receive Date: 20190801
  Receipt Date: 20190801
  Transmission Date: 20191004
  Serious: Yes (Other)
  Sender: FDA-Public Use
  Company Number: US-TEVA-2019-US-1084341

PATIENT
  Age: 72 Year
  Sex: Female

DRUGS (1)
  1. DIAZEPAM TEVA [Suspect]
     Active Substance: DIAZEPAM
     Dates: start: 20190628

REACTIONS (11)
  - Blood pressure fluctuation [Not Recovered/Not Resolved]
  - Cerebrovascular accident [Unknown]
  - Feeling hot [Unknown]
  - Flushing [Unknown]
  - Blood pressure increased [Recovered/Resolved]
  - Headache [Unknown]
  - Diplopia [Unknown]
  - Hyperhidrosis [Unknown]
  - Vision blurred [Unknown]
  - Tremor [Unknown]
  - Palpitations [Unknown]

NARRATIVE: CASE EVENT DATE: 201906
